FAERS Safety Report 5778774-7 (Version None)
Quarter: 2008Q2

REPORT INFORMATION
  Report Type: 
  Country: None (occurrence: None)
  Receive Date: 20080616
  Receipt Date: 20070425
  Transmission Date: 20081010
  Serious: Yes (Other)
  Sender: FDA-Public Use
  Company Number: WAES 0705USA00983

PATIENT
  Age: 90 Year
  Sex: Female

DRUGS (1)
  1. COZAAR [Suspect]

REACTIONS (1)
  - RENAL FAILURE [None]
